FAERS Safety Report 5019160-7 (Version None)
Quarter: 2006Q2

REPORT INFORMATION
  Report Type: 
  Country: None (occurrence: None)
  Receive Date: 20060531
  Receipt Date: 20060519
  Transmission Date: 20061013
  Serious: Yes (Death)
  Sender: FDA-Public Use
  Company Number: T05-USA-02367-01

PATIENT
  Age: 85 Year
  Sex: Female
  Weight: 51.7101 kg

DRUGS (24)
  1. MEMANTINE HCL [Suspect]
  2. PLACEBO (UNBLINDED) (PLACEBO) [Suspect]
     Indication: DEMENTIA ALZHEIMER'S TYPE
     Dosage: 4 TABLET QD PO
     Route: 048
     Dates: start: 20050318, end: 20050627
  3. ASPIRIN [Concomitant]
  4. CO-DIOVAN [Concomitant]
  5. FERROUS SULFATE TAB [Concomitant]
  6. PROZAC [Concomitant]
  7. RISPERDAL [Concomitant]
  8. DILANTIN [Concomitant]
  9. FOSAMAX [Concomitant]
  10. SYNTHROID [Concomitant]
  11. COLACE (DOCUSATE SODIUM) [Concomitant]
  12. MILK OF MAGNESIA TAB [Concomitant]
  13. EXTRA STRENGTH TYLENOL [Concomitant]
  14. LORAZEPAM [Concomitant]
  15. MYLANTA [Concomitant]
  16. COMPAZEIN (PROCHLORPERAZINE EDISYLATE) [Concomitant]
  17. SORBITOL [Concomitant]
  18. MULTIVITAMIN [Concomitant]
  19. CEPHALEXIN [Concomitant]
  20. LEVAQUIN [Concomitant]
  21. REMERON [Concomitant]
  22. AUGMENTIN '125' [Concomitant]
  23. NYSTATIN [Concomitant]
  24. DULOLAX (BISACODYL) [Concomitant]

REACTIONS (4)
  - AGITATION [None]
  - ASTHENIA [None]
  - FEEDING DISORDER [None]
  - INTESTINAL OBSTRUCTION [None]
